FAERS Safety Report 5637490-2 (Version None)
Quarter: 2008Q1

REPORT INFORMATION
  Report Type: 
  Country: None (occurrence: None)
  Receive Date: 20080225
  Receipt Date: 20080213
  Transmission Date: 20080703
  Serious: Yes (Other)
  Sender: FDA-Public Use
  Company Number: US-PFIZER INC-2008014763

PATIENT
  Sex: Male
  Weight: 104.3 kg

DRUGS (6)
  1. LYRICA [Suspect]
     Indication: HERPES ZOSTER
     Route: 048
     Dates: start: 20080101, end: 20080212
  2. GLIPIZIDE [Concomitant]
  3. LOTREL [Concomitant]
  4. TOPROL [Concomitant]
  5. CRESTOR [Concomitant]
  6. ACYCLOVIR [Concomitant]

REACTIONS (7)
  - HYPOAESTHESIA [None]
  - HYPOAESTHESIA FACIAL [None]
  - NECK PAIN [None]
  - PHARYNGEAL HYPOAESTHESIA [None]
  - PHARYNGEAL OEDEMA [None]
  - PHARYNGOLARYNGEAL PAIN [None]
  - SENSATION OF FOREIGN BODY [None]
